FAERS Safety Report 5469434-0 (Version None)
Quarter: 2007Q3

REPORT INFORMATION
  Report Type: 
  Country: None (occurrence: None)
  Receive Date: 20070927
  Receipt Date: 20070924
  Transmission Date: 20080115
  Serious: Yes (Other)
  Sender: FDA-Public Use
  Company Number: US-ASTRAZENECA-2007UW22395

PATIENT
  Age: 14330 Day
  Sex: Male

DRUGS (1)
  1. NEXIUM [Suspect]
     Indication: ULCER
     Route: 048
     Dates: start: 20070920, end: 20070921

REACTIONS (3)
  - DIARRHOEA [None]
  - HAEMATEMESIS [None]
  - VOMITING [None]
